FAERS Safety Report 5745176-9 (Version None)
Quarter: 2008Q2

REPORT INFORMATION
  Report Type: 
  Country: None (occurrence: None)
  Receive Date: 20080521
  Receipt Date: 20080520
  Transmission Date: 20081010
  Serious: Yes (Other)
  Sender: FDA-Public Use
  Company Number: US-RB-001380-08

PATIENT

DRUGS (1)
  1. SUBOXONE [Suspect]
     Indication: DRUG USE FOR UNKNOWN INDICATION
     Dosage: UNKNOWN DOSAGE
     Route: 060
     Dates: end: 20070201

REACTIONS (3)
  - DYSARTHRIA [None]
  - INCONTINENCE [None]
  - NERVOUS SYSTEM DISORDER [None]
